FAERS Safety Report 12604232 (Version 2)
Quarter: 2016Q3

REPORT INFORMATION
  Report Type: Spontaneous
  Country: IT (occurrence: IT)
  Receive Date: 20160728
  Receipt Date: 20160805
  Transmission Date: 20161109
  Serious: Yes (Hospitalization, Other)
  Sender: FDA-Public Use
  Company Number: IT-INCYTE CORPORATION-2016IN004469

PATIENT
  Age: 68 Year
  Sex: Male

DRUGS (3)
  1. JAKAFI [Suspect]
     Active Substance: RUXOLITINIB
     Indication: PRIMARY MYELOFIBROSIS
     Dosage: 15 MG, BID
     Route: 065
     Dates: start: 20130301, end: 20160118
  2. JAKAFI [Suspect]
     Active Substance: RUXOLITINIB
     Dosage: 15 MG, BID
     Route: 065
  3. MODURETIC 5-50 [Concomitant]
     Active Substance: AMILORIDE HYDROCHLORIDE\HYDROCHLOROTHIAZIDE
     Indication: HYPERTENSION
     Route: 065

REACTIONS (12)
  - Squamous cell carcinoma of skin [Unknown]
  - Drug ineffective [Unknown]
  - Splenic infarction [Unknown]
  - Platelet count increased [Unknown]
  - Second primary malignancy [Recovered/Resolved]
  - Metastases to meninges [Unknown]
  - Anaemia [Unknown]
  - Weight decreased [Unknown]
  - Metastases to meninges [Recovered/Resolved]
  - Squamous cell carcinoma [Recovered/Resolved]
  - Hyperhidrosis [Unknown]
  - Peripheral sensory neuropathy [Unknown]

NARRATIVE: CASE EVENT DATE: 201504
